FAERS Safety Report 25263434 (Version 1)
Quarter: 2025Q2

REPORT INFORMATION
  Report Type: Spontaneous
  Country: US (occurrence: US)
  Receive Date: 20250502
  Receipt Date: 20250502
  Transmission Date: 20250716
  Serious: No
  Sender: ELI LILLY AND COMPANY
  Company Number: US-ELI_LILLY_AND_COMPANY-US202505000403

PATIENT
  Age: 53 Year
  Sex: Female

DRUGS (4)
  1. ZEPBOUND [Suspect]
     Active Substance: TIRZEPATIDE
     Indication: Diarrhoea
     Route: 065
     Dates: end: 20250403
  2. ZEPBOUND [Suspect]
     Active Substance: TIRZEPATIDE
     Indication: Diarrhoea
     Route: 065
     Dates: end: 20250403
  3. ZEPBOUND [Suspect]
     Active Substance: TIRZEPATIDE
     Indication: Diarrhoea
     Route: 065
     Dates: end: 20250403
  4. ZEPBOUND [Suspect]
     Active Substance: TIRZEPATIDE
     Indication: Diarrhoea
     Route: 065
     Dates: end: 20250403

REACTIONS (2)
  - Off label use [Unknown]
  - Diarrhoea [Recovered/Resolved]
